FAERS Safety Report 21525353 (Version 5)
Quarter: 2023Q1

REPORT INFORMATION
  Report Type: Report from Study
  Country: PE (occurrence: PE)
  Receive Date: 20221030
  Receipt Date: 20230321
  Transmission Date: 20230417
  Serious: Yes (Other)
  Sender: FDA-Public Use
  Company Number: PE-NOVARTISPH-NVSC2022PE242600

PATIENT
  Sex: Female

DRUGS (4)
  1. KISQALI [Suspect]
     Active Substance: RIBOCICLIB
     Indication: Breast cancer
     Dosage: 2 DOSAGE FORM (DAILY)
     Route: 065
  2. KISQALI [Suspect]
     Active Substance: RIBOCICLIB
     Dosage: 400 MG, QD
     Route: 048
     Dates: start: 20221017
  3. TRIPTORELIN [Concomitant]
     Active Substance: TRIPTORELIN
     Indication: Product used for unknown indication
     Dosage: UNK
     Route: 065
  4. OMEPRAZOLE [Concomitant]
     Active Substance: OMEPRAZOLE
     Indication: Product used for unknown indication
     Dosage: UNK
     Route: 065

REACTIONS (30)
  - Arrhythmia [Unknown]
  - Vocal cord disorder [Unknown]
  - Insomnia [Unknown]
  - Throat irritation [Unknown]
  - Arthralgia [Unknown]
  - Cardiac disorder [Unknown]
  - Panic reaction [Unknown]
  - Anxiety [Unknown]
  - Tachycardia [Unknown]
  - Decreased immune responsiveness [Unknown]
  - Acne [Unknown]
  - Skin wound [Unknown]
  - Oral herpes [Unknown]
  - Memory impairment [Unknown]
  - Influenza [Unknown]
  - Throat tightness [Unknown]
  - Nasal congestion [Unknown]
  - Abdominal discomfort [Unknown]
  - Musculoskeletal discomfort [Unknown]
  - Arthropathy [Unknown]
  - Bone demineralisation [Unknown]
  - Tonsillar disorder [Unknown]
  - Dry mouth [Unknown]
  - Malaise [Unknown]
  - Pain [Unknown]
  - Headache [Unknown]
  - Dyspnoea [Unknown]
  - Cough [Unknown]
  - Fatigue [Unknown]
  - Stomatitis [Unknown]
